FAERS Safety Report 6985608-1 (Version None)
Quarter: 2010Q3

REPORT INFORMATION
  Report Type: 
  Country: None (occurrence: None)
  Receive Date: 20100915
  Receipt Date: 20100907
  Transmission Date: 20110219
  Serious: Yes (Other)
  Sender: FDA-Public Use
  Company Number: IT-BRISTOL-MYERS SQUIBB COMPANY-15284631

PATIENT
  Age: 57 Year
  Sex: Male

DRUGS (9)
  1. GLUCOPHAGE [Suspect]
     Indication: DIABETES MELLITUS
     Route: 048
     Dates: start: 20090901, end: 20100828
  2. LEVEMIR [Suspect]
     Indication: DIABETES MELLITUS
     Route: 058
     Dates: start: 20090901, end: 20100828
  3. NOVORAPID [Suspect]
     Indication: DIABETES MELLITUS
     Route: 058
     Dates: start: 20090901, end: 20100828
  4. TICLOPIDINE HCL [Concomitant]
  5. LYRICA [Concomitant]
  6. CONGESCOR [Concomitant]
  7. TAREG [Concomitant]
  8. PRILOSEC [Concomitant]
  9. NORVASC [Concomitant]

REACTIONS (2)
  - HYPOGLYCAEMIA [None]
  - LOSS OF CONSCIOUSNESS [None]
